FAERS Safety Report 5423703-9 (Version None)
Quarter: 2007Q3

REPORT INFORMATION
  Report Type: 
  Country: None (occurrence: None)
  Receive Date: 20070725
  Receipt Date: 20070405
  Transmission Date: 20080115
  Serious: Yes (Other)
  Sender: FDA-Public Use
  Company Number: US200704001226

PATIENT
  Sex: Female

DRUGS (3)
  1. STRATTERA [Suspect]
     Indication: ATTENTION DEFICIT/HYPERACTIVITY DISORDER
     Dosage: 40 MG, EACH MORNING, ORAL; 60 MG, EACH EVENING
     Route: 048
  2. CELEXA [Concomitant]
  3. WELLBUTRIN [Concomitant]

REACTIONS (2)
  - CONVULSION [None]
  - HAND FRACTURE [None]
